FAERS Safety Report 25175908 (Version 1)
Quarter: 2025Q2

REPORT INFORMATION
  Report Type: Spontaneous
  Country: KR (occurrence: KR)
  Receive Date: 20250409
  Receipt Date: 20250409
  Transmission Date: 20250717
  Serious: Yes (Death, Life-Threatening, Hospitalization, Other)
  Sender: PFIZER
  Company Number: KR-CELLTRION INC.-2024KR031330

PATIENT
  Age: 66 Year
  Sex: Male

DRUGS (97)
  1. CYTARABINE [Suspect]
     Active Substance: CYTARABINE
     Indication: Mantle cell lymphoma
     Route: 042
     Dates: start: 20241217, end: 20241219
  2. TRUXIMA [Suspect]
     Active Substance: RITUXIMAB-ABBS
     Indication: Mantle cell lymphoma
     Route: 042
     Dates: start: 20241118, end: 20241118
  3. TRUXIMA [Suspect]
     Active Substance: RITUXIMAB-ABBS
     Route: 042
     Dates: start: 20241118, end: 20241118
  4. TRUXIMA [Suspect]
     Active Substance: RITUXIMAB-ABBS
     Route: 042
     Dates: start: 20241216, end: 20241216
  5. TRUXIMA [Suspect]
     Active Substance: RITUXIMAB-ABBS
     Dates: start: 20241216
  6. NEULASTA [Suspect]
     Active Substance: PEGFILGRASTIM
     Route: 058
     Dates: start: 20241221, end: 20241221
  7. BENDAMUSTINE HYDROCHLORIDE MONOHYDRATE [Suspect]
     Active Substance: BENDAMUSTINE HYDROCHLORIDE MONOHYDRATE
     Indication: Mantle cell lymphoma
     Route: 042
     Dates: start: 20241118, end: 20241119
  8. BENDAMUSTINE HYDROCHLORIDE MONOHYDRATE [Suspect]
     Active Substance: BENDAMUSTINE HYDROCHLORIDE MONOHYDRATE
     Route: 042
     Dates: start: 20241217, end: 20241218
  9. ZANUBRUTINIB [Suspect]
     Active Substance: ZANUBRUTINIB
     Indication: Mantle cell lymphoma
     Dates: start: 20250109
  10. ACEDOL [PARACETAMOL;TRAMADOL HYDROCHLORIDE] [Concomitant]
     Dosage: 3 DF, DAILY (3TAB, DAILY)
     Route: 048
     Dates: start: 20241129, end: 20241227
  11. ACETPHEN PREMIX [Concomitant]
     Dosage: 0.5 G, DAILY
     Route: 042
     Dates: start: 20241204, end: 20241204
  12. ACETPHEN PREMIX [Concomitant]
     Dosage: 1.5 G, 1X/DAY
     Route: 042
     Dates: start: 20241218, end: 20241218
  13. ACETPHEN PREMIX [Concomitant]
     Route: 042
     Dates: start: 20241222, end: 20241223
  14. ACETPHEN PREMIX [Concomitant]
     Route: 042
     Dates: start: 20241225, end: 20241225
  15. ACETPHEN PREMIX [Concomitant]
     Route: 042
     Dates: start: 20241227, end: 20241227
  16. ACETPHEN PREMIX [Concomitant]
     Dosage: 1 G, 2X/DAY
     Route: 042
     Dates: start: 20241229, end: 20241230
  17. ACETPHEN PREMIX [Concomitant]
     Dosage: 1 G, 2X/DAY
     Route: 042
     Dates: start: 20241231, end: 20241231
  18. ACETPHEN PREMIX [Concomitant]
     Dosage: 0.5 G, 1X/DAY
     Route: 042
     Dates: start: 20250102, end: 20250102
  19. ACETPHEN PREMIX [Concomitant]
     Dosage: 1 G, 2X/DAY
     Route: 042
     Dates: start: 20250104, end: 20250107
  20. ACETPHEN PREMIX [Concomitant]
     Dosage: 1 G, 2X/DAY
     Route: 042
     Dates: start: 20250110, end: 20250126
  21. ALLPAIN [ACECLOFENAC] [Concomitant]
     Dosage: 60 MG, DAILY
     Route: 048
     Dates: start: 20241204, end: 20241204
  22. ALLPAIN [ACECLOFENAC] [Concomitant]
     Dosage: 60 MG, DAILY
     Route: 048
     Dates: start: 20241206
  23. CEFTRIAXONE [Concomitant]
     Active Substance: CEFTRIAXONE
     Dosage: 2 G, 1X/DAY
     Route: 042
     Dates: start: 20241227, end: 20241228
  24. CELECOXIB [Concomitant]
     Active Substance: CELECOXIB
     Dosage: 400 MG, 2X/DAY
     Route: 048
     Dates: start: 20241219, end: 20241226
  25. CELECOXIB [Concomitant]
     Active Substance: CELECOXIB
     Dosage: 400 MG, 2X/DAY
     Route: 048
     Dates: start: 20250119, end: 20250124
  26. HYDROCORTISONE SODIUM SUCCINATE [Concomitant]
     Active Substance: HYDROCORTISONE SODIUM SUCCINATE
     Dosage: 100 MG, 1X/DAY
     Route: 042
     Dates: start: 20241230, end: 20250102
  27. HYDROCORTISONE SODIUM SUCCINATE [Concomitant]
     Active Substance: HYDROCORTISONE SODIUM SUCCINATE
     Dosage: 20 MG, 1X/DAY
     Route: 042
     Dates: start: 20250106, end: 20250108
  28. LEVOFLOXACIN [Concomitant]
     Active Substance: LEVOFLOXACIN
     Dosage: 500 MG, DAILY
     Route: 042
     Dates: start: 20241204, end: 20241206
  29. LEVOFLOXACIN [Concomitant]
     Active Substance: LEVOFLOXACIN
     Dosage: 500 MG, DAILY
     Route: 048
     Dates: start: 20241207
  30. LEVOFLOXACIN [Concomitant]
     Active Substance: LEVOFLOXACIN
     Dosage: 500 MG, 1X/DAY
     Route: 042
     Dates: start: 20241219, end: 20241226
  31. DEXAMETHASONE [Concomitant]
     Active Substance: DEXAMETHASONE
     Route: 042
     Dates: start: 20241228, end: 20241228
  32. DEXAMETHASONE [Concomitant]
     Active Substance: DEXAMETHASONE
     Route: 042
     Dates: start: 20250102, end: 20250102
  33. DIFLUCAN [Concomitant]
     Active Substance: FLUCONAZOLE
     Dosage: 5 ML, 1X/DAY
     Route: 048
     Dates: start: 20241219, end: 20241226
  34. ENCOVER [Concomitant]
     Dosage: 400 ML, 2X/DAY
     Route: 048
     Dates: start: 20241226, end: 20241226
  35. ENCOVER [Concomitant]
     Dosage: 800 ML, 2X/DAY
     Route: 048
     Dates: start: 20241227, end: 20241228
  36. EPINEPHRINE [Concomitant]
     Active Substance: EPINEPHRINE
     Route: 042
     Dates: start: 20241227, end: 20241227
  37. EPINEPHRINE [Concomitant]
     Active Substance: EPINEPHRINE
     Dosage: 1 MG, 1X/DAY
     Route: 042
     Dates: start: 20250126, end: 20250127
  38. ETOMIDATE [Concomitant]
     Active Substance: ETOMIDATE
     Route: 042
     Dates: start: 20241230
  39. ETOMIDATE [Concomitant]
     Active Substance: ETOMIDATE
     Dosage: 20 MG, 1X/DAY
     Dates: start: 20250102, end: 20250104
  40. ETOMIDATE [Concomitant]
     Active Substance: ETOMIDATE
     Dosage: 20 MG, 1X/DAY
     Route: 042
     Dates: start: 20250122, end: 20250122
  41. FUROSEMIDE [Concomitant]
     Active Substance: FUROSEMIDE
     Dosage: 40 MG, DAILY
     Route: 048
     Dates: start: 20241207
  42. GASTER [Concomitant]
     Active Substance: FAMOTIDINE
     Dosage: 40 MG, 2X/DAY (SOLUTION (EXCEPT SYRUP))
     Route: 042
     Dates: start: 20241228, end: 20250108
  43. HEPARIN [Concomitant]
     Active Substance: HEPARIN SODIUM
     Dosage: 1000 IU, DAILY
     Route: 042
     Dates: start: 20241205, end: 20241206
  44. DILTIAZEM HYDROCHLORIDE [Concomitant]
     Active Substance: DILTIAZEM HYDROCHLORIDE
     Route: 042
     Dates: start: 20241230
  45. DILTIAZEM HYDROCHLORIDE [Concomitant]
     Active Substance: DILTIAZEM HYDROCHLORIDE
     Dosage: 200 MG, 1X/DAY
     Route: 042
     Dates: start: 20241230, end: 20250108
  46. JANUVIA [Concomitant]
     Active Substance: SITAGLIPTIN PHOSPHATE
     Dosage: 50 MG, DAILY
     Route: 048
     Dates: start: 20241101, end: 20241228
  47. TEGOPRAZAN [Concomitant]
     Active Substance: TEGOPRAZAN
     Dosage: 50 MG, DAILY
     Route: 048
     Dates: start: 20241108, end: 20241228
  48. LASIX [Concomitant]
     Active Substance: FUROSEMIDE
     Route: 042
     Dates: start: 20241218, end: 20241218
  49. LASIX [Concomitant]
     Active Substance: FUROSEMIDE
     Route: 042
     Dates: start: 20241220, end: 20241220
  50. LASIX [Concomitant]
     Active Substance: FUROSEMIDE
     Route: 042
     Dates: start: 20241223, end: 20241227
  51. LASIX [Concomitant]
     Active Substance: FUROSEMIDE
     Dosage: 40 MG, 2X/DAY
     Route: 042
     Dates: start: 20241228, end: 20241229
  52. LASIX [Concomitant]
     Active Substance: FUROSEMIDE
     Dosage: 80 MG, 2X/DAY
     Route: 042
     Dates: start: 20241230, end: 20241230
  53. LASIX [Concomitant]
     Active Substance: FUROSEMIDE
     Dosage: 160 MG, BID
     Route: 042
     Dates: start: 20241231, end: 20250103
  54. LASIX [Concomitant]
     Active Substance: FUROSEMIDE
     Dosage: 20 MG, 1X/DAY
     Route: 042
     Dates: start: 20250104, end: 20250105
  55. LASIX [Concomitant]
     Active Substance: FUROSEMIDE
     Route: 042
     Dates: start: 20250108, end: 20250108
  56. LASIX [Concomitant]
     Active Substance: FUROSEMIDE
     Dosage: 10 MG, 1X/DAY
     Route: 042
     Dates: start: 20250112, end: 20250113
  57. LASIX [Concomitant]
     Active Substance: FUROSEMIDE
     Dosage: 10 MG, 1X/DAY
     Route: 042
     Dates: start: 20250115, end: 20250115
  58. LASIX [Concomitant]
     Active Substance: FUROSEMIDE
     Dosage: 10 MG, 1X/DAY
     Route: 042
     Dates: start: 20250118, end: 20250118
  59. LASIX [Concomitant]
     Active Substance: FUROSEMIDE
     Dosage: 40 MG, 2X/DAY
     Route: 042
     Dates: start: 20250119, end: 20250120
  60. LASIX [Concomitant]
     Active Substance: FUROSEMIDE
     Dosage: 20 MG, 1X/DAY
     Route: 042
     Dates: start: 20250121, end: 20250121
  61. LASIX [Concomitant]
     Active Substance: FUROSEMIDE
     Dosage: 20 MG, 1X/DAY
     Route: 042
     Dates: start: 20250123, end: 20250123
  62. MUCIDIN [Concomitant]
     Dosage: 400 MG, DAILY
     Route: 048
     Dates: start: 20241115, end: 20241228
  63. MUCIDIN [Concomitant]
     Dosage: 600 MG, 3X/DAY
     Route: 048
     Dates: start: 20241115, end: 20241228
  64. REBAMIPIDE [Concomitant]
     Active Substance: REBAMIPIDE
     Dosage: 300 MG, DAILY
     Route: 048
     Dates: start: 20241202, end: 20241226
  65. OMP S [ESOMEPRAZOLE SODIUM] [Concomitant]
     Dosage: 40 MG, DAILY
     Route: 042
     Dates: start: 20241204, end: 20241204
  66. PACETA [Concomitant]
     Dosage: 2 G, 2X/DAY
     Route: 042
     Dates: start: 20241222, end: 20241222
  67. PACETA [Concomitant]
     Dosage: 1 G, QD
     Route: 042
     Dates: start: 20241223, end: 20241223
  68. PACETA [Concomitant]
     Route: 042
     Dates: start: 20241228
  69. PACETA [Concomitant]
     Dosage: 1 G, 1X/DAY
     Route: 042
     Dates: start: 20241227, end: 20241230
  70. PACETA [Concomitant]
     Dosage: 1 G, 1X/DAY
     Route: 042
     Dates: start: 20250106, end: 20250210
  71. PACETA [Concomitant]
     Dosage: 2 G, 1X/DAY
     Route: 042
     Dates: start: 20250107, end: 20250108
  72. PREDISOL [METHYLPREDNISOLONE] [Concomitant]
     Dosage: 10 MG, 1X/DAY
     Route: 042
     Dates: start: 20241218, end: 20241222
  73. PREDISOL [METHYLPREDNISOLONE] [Concomitant]
     Dosage: 30 MG, 1X/DAY
     Route: 042
     Dates: start: 20241223, end: 20250105
  74. PREDISOL [METHYLPREDNISOLONE] [Concomitant]
     Dosage: 30 MG, 1X/DAY
     Route: 042
     Dates: start: 20250108, end: 20250127
  75. REMICUT [Concomitant]
     Dosage: 2 MG, 2X/DAY
     Route: 048
     Dates: start: 20241122, end: 20241228
  76. SPOCORA [Concomitant]
     Dosage: 200 MG, 1X/DAY
     Route: 048
     Dates: start: 20241226, end: 20241226
  77. TOPIDERM [DESONIDE] [Concomitant]
     Route: 062
     Dates: start: 20241218, end: 20241226
  78. XYZAL [Concomitant]
     Active Substance: LEVOCETIRIZINE DIHYDROCHLORIDE
     Dosage: 5 MG, DAILY
     Route: 048
     Dates: start: 20241122, end: 20241228
  79. LENOGRASTIM [Concomitant]
     Active Substance: LENOGRASTIM
     Dosage: 250 UG, 1X/DAY
     Route: 058
     Dates: start: 20241228, end: 20241229
  80. VECARON [Concomitant]
     Route: 042
     Dates: start: 20241230, end: 20250101
  81. VECARON [Concomitant]
     Route: 042
     Dates: start: 20250124, end: 20250127
  82. MUCOMYST [Concomitant]
     Active Substance: ACETYLCYSTEINE
     Dosage: 400 MG, 3X/DAY (INHALER)
     Route: 055
     Dates: start: 20241227, end: 20241229
  83. MUCOMYST [Concomitant]
     Active Substance: ACETYLCYSTEINE
     Route: 055
     Dates: start: 20241230, end: 20250115
  84. MUCOMYST [Concomitant]
     Active Substance: ACETYLCYSTEINE
     Route: 055
     Dates: start: 20241216, end: 20250126
  85. VANCOCIN CP [Concomitant]
     Dosage: 2 G, 2X/DAY
     Route: 042
     Dates: start: 20241228, end: 20241228
  86. VANCOCIN CP [Concomitant]
     Dosage: 1.2 G, 2X/DAY
     Route: 042
     Dates: start: 20241229, end: 20241229
  87. VANCOCIN CP [Concomitant]
     Dosage: 1.8 G, 2X/DAY
     Route: 042
     Dates: start: 20241230, end: 20250101
  88. VANCOCIN CP [Concomitant]
     Dosage: 1.4 G, 2X/DAY
     Route: 042
     Dates: start: 20250101, end: 20250105
  89. VANCOCIN CP [Concomitant]
     Dosage: 2 G, 2X/DAY
     Route: 042
     Dates: start: 20250108, end: 20250109
  90. VANCOCIN CP [Concomitant]
     Dosage: 1.6 G, 2X/DAY
     Route: 042
     Dates: start: 20250110, end: 20250115
  91. VANCOCIN CP [Concomitant]
     Dosage: 1.5 G, 2X/DAY
     Route: 042
     Dates: start: 20250116, end: 20250119
  92. VANCOCIN CP [Concomitant]
     Dosage: 1.2 G, 2X/DAY
     Route: 042
     Dates: start: 20250120, end: 20250122
  93. VANCOCIN CP [Concomitant]
     Dosage: 800 MG, 2X/DAY (800MG/BID (500MG)
     Route: 042
     Dates: start: 20250123, end: 20250125
  94. MEROPENEM [Concomitant]
     Active Substance: MEROPENEM
     Dosage: 6 G, 3X/DAY
     Route: 042
     Dates: start: 20241230, end: 20250102
  95. HYALURONATE SODIUM [Concomitant]
     Active Substance: HYALURONATE SODIUM
     Route: 047
     Dates: start: 20241226, end: 20241229
  96. BRUKINSA [Concomitant]
     Active Substance: ZANUBRUTINIB
     Dosage: 320 MG, 1X/DAY
     Route: 048
     Dates: start: 20250109, end: 20250123
  97. CONBLOC [Concomitant]
     Dosage: 2.5 MG, 2X/DAY
     Route: 048
     Dates: start: 20250108, end: 20250124

REACTIONS (6)
  - Lymphoma [Fatal]
  - Malignant neoplasm progression [Fatal]
  - Dermatitis exfoliative [Not Recovered/Not Resolved]
  - Chills [Recovered/Resolved]
  - Pyrexia [Not Recovered/Not Resolved]
  - Off label use [Unknown]

NARRATIVE: CASE EVENT DATE: 20241203
